FAERS Safety Report 8482399-2 (Version None)
Quarter: 2012Q3

REPORT INFORMATION
  Report Type: 
  Country: None (occurrence: None)
  Receive Date: 20120702
  Receipt Date: 20120621
  Transmission Date: 20120928
  Serious: Yes (Congenital Anomaly)
  Sender: FDA-Public Use
  Company Number: US-GLAXOSMITHKLINE-A0814851A

PATIENT
  Sex: Male
  Weight: 3.3 kg

DRUGS (3)
  1. PAROXETINE HCL [Suspect]
     Dosage: 20MG UNKNOWN
     Route: 064
  2. PAXIL [Suspect]
     Indication: DEPRESSION
     Dosage: 20MG PER DAY
     Route: 064
  3. MULTI-VITAMINS [Concomitant]

REACTIONS (4)
  - VENTRICULAR SEPTAL DEFECT [None]
  - MULTIPLE CONGENITAL ABNORMALITIES [None]
  - FOETAL EXPOSURE DURING PREGNANCY [None]
  - CONGENITAL ANOMALY [None]
